FAERS Safety Report 9157056 (Version 1)
Quarter: 2013Q1

REPORT INFORMATION
  Report Type: Spontaneous
  Country: US (occurrence: None)
  Receive Date: 20130206
  Receipt Date: 20130206
  Transmission Date: 20140127
  Serious: Yes (Hospitalization)
  Sender: FDA-Public Use
  Company Number: DKLU1088491

PATIENT
  Age: 11 Month
  Sex: Male

DRUGS (1)
  1. SABRIL (FOR ORAL SOLUTION) (SABRIL) (VIGABATRIN) [Suspect]
     Indication: INFANTILE SPASMS
     Dates: start: 20121205

REACTIONS (1)
  - Gastrointestinal disorder [None]
